FAERS Safety Report 18104288 (Version 4)
Quarter: 2020Q3

REPORT INFORMATION
  Report Type: Report from Study
  Country: None (occurrence: US)
  Receive Date: 20200803
  Receipt Date: 20200818
  Transmission Date: 20201103
  Serious: Yes (Other)
  Sender: FDA-Public Use
  Company Number: US-BIOVITRUM-2020US3687

PATIENT
  Age: 41 Year
  Sex: Female

DRUGS (1)
  1. KINERET [Suspect]
     Active Substance: ANAKINRA
     Indication: PERICARDIAL DISEASE
     Dosage: 100MG/0.67ML
     Route: 058
     Dates: start: 20200708

REACTIONS (25)
  - Erythema [Unknown]
  - Oropharyngeal pain [Unknown]
  - Hypersensitivity [Unknown]
  - Headache [Unknown]
  - Influenza like illness [Unknown]
  - Pericardial disease [Unknown]
  - Condition aggravated [Unknown]
  - Feeling hot [Unknown]
  - Dysphonia [Unknown]
  - Pain in extremity [Unknown]
  - Mental impairment [Unknown]
  - Fatigue [Unknown]
  - Lethargy [Unknown]
  - Product dose omission issue [Recovered/Resolved]
  - Asthenia [Unknown]
  - Injection site reaction [Unknown]
  - Off label use [Unknown]
  - Chest discomfort [Not Recovered/Not Resolved]
  - Wheezing [Recovered/Resolved]
  - Feeling abnormal [Unknown]
  - Dyspnoea [Unknown]
  - Decreased appetite [Unknown]
  - Pruritus [Unknown]
  - Intentional product use issue [Unknown]
  - Pyrexia [Unknown]

NARRATIVE: CASE EVENT DATE: 20200708
